FAERS Safety Report 5844041-6 (Version None)
Quarter: 2008Q3

REPORT INFORMATION
  Report Type: 
  Country: None (occurrence: None)
  Receive Date: 20080813
  Receipt Date: 20080804
  Transmission Date: 20090109
  Serious: Yes (Hospitalization, Other)
  Sender: FDA-Public Use
  Company Number: US-ELI_LILLY_AND_COMPANY-US200807000199

PATIENT
  Sex: Female

DRUGS (7)
  1. CYMBALTA [Suspect]
     Dosage: 60 MG, UNK
  2. ALCOHOL [Concomitant]
     Dosage: 1 D/F, UNK
  3. BACLOFEN [Concomitant]
  4. COMPAZINE [Concomitant]
  5. NEXIUM [Concomitant]
  6. LASIX [Concomitant]
  7. NEURONTIN [Concomitant]

REACTIONS (2)
  - HEPATITIS A [None]
  - HEPATOTOXICITY [None]
